FAERS Safety Report 7371662-4 (Version None)
Quarter: 2011Q1

REPORT INFORMATION
  Report Type: 
  Country: None (occurrence: None)
  Receive Date: 20110307
  Receipt Date: 20110224
  Transmission Date: 20110831
  Serious: Yes (Death, Hospitalization, Other)
  Sender: FDA-Public Use
  Company Number: 2010PROUSA00033

PATIENT
  Age: 65 Year
  Sex: Male
  Weight: 81.6 kg

DRUGS (23)
  1. SPIRONOLACTONE [Concomitant]
  2. DIGOXIN [Concomitant]
  3. ALLEGRA [Concomitant]
  4. SINGULAIR [Concomitant]
  5. LANOXIN [Concomitant]
  6. VIOXX (ROGECOXIB) [Concomitant]
  7. SKELAXIN /00611501/ (METAXALONE) [Concomitant]
  8. LOVENOX [Concomitant]
  9. DARVOCET [Concomitant]
  10. AMBIEN [Concomitant]
  11. LUPRON [Concomitant]
  12. PROVENGE [Suspect]
     Indication: PROSTATE CANCER METASTATIC
     Dosage: (250 ML, SINGLE, INTRAVENOUS) (250 ML, SINGLE, INTRAVENOUS) (250 ML, SINGLE, INTRAVENOUS)
     Route: 042
     Dates: start: 20100924, end: 20100924
  13. PROVENGE [Suspect]
     Indication: PROSTATE CANCER METASTATIC
     Dosage: (250 ML, SINGLE, INTRAVENOUS) (250 ML, SINGLE, INTRAVENOUS) (250 ML, SINGLE, INTRAVENOUS)
     Route: 042
     Dates: start: 20100913, end: 20100913
  14. PROVENGE [Suspect]
     Indication: PROSTATE CANCER METASTATIC
     Dosage: (250 ML, SINGLE, INTRAVENOUS) (250 ML, SINGLE, INTRAVENOUS) (250 ML, SINGLE, INTRAVENOUS)
     Route: 042
     Dates: start: 20100719, end: 20100719
  15. AVAPRO [Concomitant]
  16. PREDNISONE (PREDNISONE) [Concomitant]
  17. PROTONIC (PANTOPRAZOLE SODIUM) [Concomitant]
  18. HUMALIN /00646001/ (INSULIN HUMAN) [Concomitant]
  19. LASIX [Concomitant]
  20. COREG [Concomitant]
  21. ALDACTONE N/00006201/ (SPIRONOLACTONE) [Concomitant]
  22. SENNA /00142201/ (SENNA ALEXANDRINA) [Concomitant]
  23. NOVOLIN /00030501/ (INSULIN) [Concomitant]

REACTIONS (16)
  - MULTI-ORGAN FAILURE [None]
  - CEREBROVASCULAR ACCIDENT [None]
  - PROSTATE CANCER METASTATIC [None]
  - BACK PAIN [None]
  - HAEMOGLOBIN DECREASED [None]
  - PLATELET COUNT INCREASED [None]
  - PRODUCT CONTAMINATION MICROBIAL [None]
  - BLOOD GLUCOSE INCREASED [None]
  - STAPHYLOCOCCAL SEPSIS [None]
  - ATRIAL SEPTAL DEFECT [None]
  - MITRAL VALVE INCOMPETENCE [None]
  - INFLUENZA LIKE ILLNESS [None]
  - DISSEMINATED INTRAVASCULAR COAGULATION [None]
  - TRANSIENT ISCHAEMIC ATTACK [None]
  - HAEMATOCRIT DECREASED [None]
  - DEVICE RELATED INFECTION [None]
